FAERS Safety Report 4441719-6 (Version None)
Quarter: 2004Q3

REPORT INFORMATION
  Report Type: 
  Country: None (occurrence: None)
  Receive Date: 20040907
  Receipt Date: 20040826
  Transmission Date: 20050211
  Serious: Yes (Other)
  Sender: FDA-Public Use
  Company Number: SE-JNJFOC-20040808914

PATIENT
  Age: 72 Year
  Sex: Male

DRUGS (2)
  1. REMICADE [Suspect]
     Indication: RHEUMATOID ARTHRITIS
     Route: 042
  2. WARAN [Suspect]
     Indication: DEEP VEIN THROMBOSIS
     Route: 049

REACTIONS (2)
  - DEEP VEIN THROMBOSIS [None]
  - PROTHROMBIN LEVEL DECREASED [None]
